FAERS Safety Report 14356524 (Version 1)
Quarter: 2018Q1

REPORT INFORMATION
  Report Type: Spontaneous
  Country: CH (occurrence: CH)
  Receive Date: 20180105
  Receipt Date: 20180105
  Transmission Date: 20180509
  Serious: Yes (Other)
  Sender: FDA-Public Use
  Company Number: CH-ASTRAZENECA-2018SE00487

PATIENT
  Age: 26766 Day
  Sex: Male

DRUGS (19)
  1. ATORVASTATIN [Concomitant]
     Active Substance: ATORVASTATIN
     Route: 048
  2. SEROQUEL [Suspect]
     Active Substance: QUETIAPINE FUMARATE
     Indication: FEAR
     Route: 048
     Dates: start: 20170121
  3. GLUCOPHAGE [Concomitant]
     Active Substance: METFORMIN HYDROCHLORIDE
     Route: 048
  4. LIORESAL [Concomitant]
     Active Substance: BACLOFEN
     Route: 048
  5. LODINE [Concomitant]
     Active Substance: ETODOLAC
     Route: 048
  6. LYRICA [Suspect]
     Active Substance: PREGABALIN
     Indication: NEURALGIA
     Dosage: 100.0MG UNKNOWN
     Route: 048
     Dates: start: 20170121
  7. ELIQUIS [Concomitant]
     Active Substance: APIXABAN
     Route: 048
  8. MYDOCALM [Concomitant]
     Active Substance: TOLPERISONE
     Route: 048
  9. ATARAX [Concomitant]
     Active Substance: HYDROXYZINE HYDROCHLORIDE
     Route: 048
  10. MIRABEGRON [Concomitant]
     Active Substance: MIRABEGRON
     Route: 048
  11. COVERSUM N [Concomitant]
     Active Substance: PERINDOPRIL
     Route: 048
  12. FINASTERIDE. [Concomitant]
     Active Substance: FINASTERIDE
     Route: 048
  13. TARGIN [Concomitant]
     Active Substance: NALOXONE HYDROCHLORIDE\OXYCODONE HYDROCHLORIDE
     Route: 048
  14. MIANSERIN [Concomitant]
     Active Substance: MIANSERIN
     Route: 048
  15. TOREM [Concomitant]
     Active Substance: TORSEMIDE
     Route: 048
  16. ZOLPIDEM [Concomitant]
     Active Substance: ZOLPIDEM\ZOLPIDEM TARTRATE
     Dosage: 10.0MG UNKNOWN
     Route: 048
  17. ELTROXIN LF [Concomitant]
     Indication: HYPOTHYROIDISM
     Route: 048
  18. PANTOZOL [Concomitant]
     Active Substance: PANTOPRAZOLE SODIUM
     Route: 048
  19. VENLAFAXINE [Concomitant]
     Active Substance: VENLAFAXINE HYDROCHLORIDE
     Route: 048

REACTIONS (2)
  - Nystagmus [Recovering/Resolving]
  - Dysarthria [Recovering/Resolving]

NARRATIVE: CASE EVENT DATE: 20170122
